FAERS Safety Report 4768173-9 (Version None)
Quarter: 2005Q3

REPORT INFORMATION
  Report Type: 
  Country: None (occurrence: None)
  Receive Date: 20050908
  Receipt Date: 20050804
  Transmission Date: 20060218
  Serious: Yes (Death)
  Sender: FDA-Public Use
  Company Number: A03200502364

PATIENT
  Age: 64 Year
  Sex: Male
  Weight: 111.5849 kg

DRUGS (3)
  1. ELOXATIN [Suspect]
     Indication: COLON CANCER METASTATIC
     Dosage: MG Q2W - INTRAVENOUS NOS
     Route: 042
     Dates: start: 20050404, end: 20050404
  2. LEUCOVORIN [Concomitant]
  3. FLUOROURACIL [Concomitant]

REACTIONS (1)
  - PULMONARY FIBROSIS [None]
